FAERS Safety Report 8495260-4 (Version None)
Quarter: 2012Q3

REPORT INFORMATION
  Report Type: 
  Country: None (occurrence: None)
  Receive Date: 20120709
  Receipt Date: 20120629
  Transmission Date: 20120928
  Serious: Yes (Other)
  Sender: FDA-Public Use
  Company Number: SE-ABBOTT-12P-150-0952336-00

PATIENT

DRUGS (2)
  1. ERGENYL SYRUP [Suspect]
     Indication: PETIT MAL EPILEPSY
     Route: 048
  2. ETHOSUXIMIDE [Concomitant]
     Indication: PRODUCT USED FOR UNKNOWN INDICATION
     Dosage: PREVIOUS

REACTIONS (2)
  - PETIT MAL EPILEPSY [None]
  - INCORRECT DOSE ADMINISTERED [None]
